FAERS Safety Report 9554314 (Version 4)
Quarter: 2014Q1

REPORT INFORMATION
  Report Type: Report from Study
  Country: BR (occurrence: BR)
  Receive Date: 20130925
  Receipt Date: 20140218
  Transmission Date: 20141002
  Serious: Yes (Hospitalization, Other)
  Sender: FDA-Public Use
  Company Number: BR-SANOFI-AVENTIS-FABR-1003593

PATIENT
  Age: 34 Year
  Sex: Male
  Weight: 73 kg

DRUGS (6)
  1. FABRAZYME [Suspect]
     Indication: FABRY^S DISEASE
     Dosage: UNK
     Route: 042
     Dates: start: 20061220
  2. RENAGEL [Suspect]
     Indication: PRODUCT USED FOR UNKNOWN INDICATION
     Route: 065
  3. ATENOLOL [Concomitant]
  4. AMLODIPINE [Concomitant]
  5. CARBAMAZEPINE [Concomitant]
  6. MULTIVITAMINS WITH MINERALS [Concomitant]

REACTIONS (4)
  - Renal failure [Unknown]
  - Hernia [Not Recovered/Not Resolved]
  - Device related infection [Unknown]
  - Pyrexia [Unknown]
